FAERS Safety Report 7139142-9 (Version None)
Quarter: 2010Q4

REPORT INFORMATION
  Report Type: 
  Country: None (occurrence: None)
  Receive Date: 20101206
  Receipt Date: 20101123
  Transmission Date: 20110411
  Serious: Yes (Other)
  Sender: FDA-Public Use
  Company Number: US-CELGENEUS-163-21880-10101924

PATIENT
  Sex: Female

DRUGS (12)
  1. REVLIMID [Suspect]
     Indication: MULTIPLE MYELOMA
     Route: 048
     Dates: start: 20090519
  2. ZOMETA [Suspect]
     Route: 065
     Dates: start: 20070301
  3. DEXAMETHASONE [Concomitant]
     Indication: MULTIPLE MYELOMA
     Route: 065
  4. ATENOLOL [Concomitant]
     Route: 048
     Dates: start: 20091007
  5. CALCIUM [Concomitant]
     Route: 048
  6. MULTI-VITAMINS [Concomitant]
     Route: 048
     Dates: start: 20070521
  7. FEOSOL [Concomitant]
     Route: 048
  8. POTASSIUM CHLORIDE [Concomitant]
     Route: 065
     Dates: start: 20091207
  9. ASPIRIN [Concomitant]
     Route: 048
     Dates: start: 20100217
  10. VITAMIN D [Concomitant]
     Dosage: 1000 UNITS
     Route: 048
     Dates: start: 20100217
  11. ZOCOR [Concomitant]
     Route: 048
     Dates: start: 20100609
  12. DARVOCET-N 100 [Concomitant]
     Indication: PAIN
     Route: 048
     Dates: start: 20101027

REACTIONS (3)
  - OSTEONECROSIS OF JAW [None]
  - TOOTH ABSCESS [None]
  - WHITE BLOOD CELL COUNT DECREASED [None]
